FAERS Safety Report 6426319-0 (Version None)
Quarter: 2009Q4

REPORT INFORMATION
  Report Type: 
  Country: None (occurrence: None)
  Receive Date: 20091030
  Receipt Date: 20091014
  Transmission Date: 20100525
  Serious: Yes (Death, Hospitalization)
  Sender: FDA-Public Use
  Company Number: A-CH2009-28132

PATIENT
  Age: 67 Year
  Sex: Female
  Weight: 70 kg

DRUGS (15)
  1. TRACLEER [Suspect]
     Indication: PULMONARY ARTERIAL HYPERTENSION
     Dosage: 125 MG, BID, ORAL, 62.5 MG, BID, ORAL
     Route: 048
     Dates: start: 20060801, end: 20060914
  2. TRACLEER [Suspect]
     Indication: PULMONARY ARTERIAL HYPERTENSION
     Dosage: 125 MG, BID, ORAL, 62.5 MG, BID, ORAL
     Route: 048
     Dates: start: 20060915, end: 20090219
  3. OXYGEN (OXYGEN) [Concomitant]
  4. DOBUTAMIN (DOBUTAMINE HYDROCHLORIDE) [Concomitant]
  5. REMODULIN (TREPROSTINIL) [Concomitant]
  6. PANTOPRAZOLE SODIUM [Concomitant]
  7. ARANESP [Concomitant]
  8. NORVASC [Concomitant]
  9. THROMBOREDUCTIN (ANAGRELIDE HYDROCHLORIDE) [Concomitant]
  10. NEBIVOLOL HCL [Concomitant]
  11. COMBITHYREX (LIOTHYRONINE SODIUM, LEVOTHYROXINE SODIUM) [Concomitant]
  12. KALIORAL (POTASSIUM CARBONATE, CITRIC ACID, POTASSIUM CITRATE) [Concomitant]
  13. ZOLPIDEM TARTRATE [Concomitant]
  14. AQUAPHORIL (XIPAMIDE) [Concomitant]
  15. SPIRIVA [Concomitant]

REACTIONS (13)
  - ABDOMINAL WALL ABSCESS [None]
  - BLOOD ALKALINE PHOSPHATASE INCREASED [None]
  - BLOOD BILIRUBIN INCREASED [None]
  - DEHYDRATION [None]
  - DIALYSIS [None]
  - GAMMA-GLUTAMYLTRANSFERASE INCREASED [None]
  - GASTROINTESTINAL INFECTION [None]
  - HAEMOGLOBIN DECREASED [None]
  - INJECTION SITE INJURY [None]
  - OEDEMA [None]
  - PLATELET COUNT DECREASED [None]
  - RENAL FAILURE ACUTE [None]
  - RIGHT VENTRICULAR FAILURE [None]
